FAERS Safety Report 9180101 (Version 1)
Quarter: 2013Q1

REPORT INFORMATION
  Report Type: Spontaneous
  Country: FR (occurrence: FR)
  Receive Date: 20130321
  Receipt Date: 20130321
  Transmission Date: 20140127
  Serious: Yes (Life-Threatening, Hospitalization)
  Sender: FDA-Public Use
  Company Number: FR-US-EMD SERONO, INC.-7199495

PATIENT
  Age: 31 Year
  Sex: Female

DRUGS (3)
  1. GONAL-F [Suspect]
     Indication: ASSISTED FERTILISATION
     Route: 058
     Dates: start: 20120304, end: 20120311
  2. OVITRELLE [Suspect]
     Indication: ASSISTED FERTILISATION
     Route: 058
     Dates: start: 20120312, end: 20120312
  3. DECAPEPTYL [Suspect]
     Indication: ASSISTED FERTILISATION
     Route: 030
     Dates: start: 2012, end: 20120311

REACTIONS (3)
  - Ovarian hyperstimulation syndrome [Recovered/Resolved]
  - Abdominal pain [None]
  - Septic shock [None]
